FAERS Safety Report 19361738 (Version 1)
Quarter: 2021Q2

REPORT INFORMATION
  Report Type: Report from Study
  Country: None (occurrence: US)
  Receive Date: 20210602
  Receipt Date: 20210602
  Transmission Date: 20210717
  Serious: Yes (Hospitalization)
  Sender: FDA-Public Use
  Company Number: US-MDD US OPERATIONS-USW202006-001221

PATIENT
  Age: 58 Year
  Sex: Male

DRUGS (4)
  1. APOKYN [Suspect]
     Active Substance: APOMORPHINE HYDROCHLORIDE
     Route: 058
  2. APOKYN [Suspect]
     Active Substance: APOMORPHINE HYDROCHLORIDE
     Indication: PARKINSON^S DISEASE
     Route: 058
     Dates: start: 20200603
  3. APOKYN [Suspect]
     Active Substance: APOMORPHINE HYDROCHLORIDE
     Dosage: 0.1 TO 0.2 ML/DOSE
     Route: 058
  4. LEVODOPA [Concomitant]
     Active Substance: LEVODOPA
     Dosage: NOT PROVIDED

REACTIONS (4)
  - Blood pressure abnormal [Unknown]
  - Injection site induration [Recovering/Resolving]
  - Blood pressure decreased [Unknown]
  - Injection site erythema [Recovering/Resolving]

NARRATIVE: CASE EVENT DATE: 2020
